FAERS Safety Report 16205317 (Version 2)
Quarter: 2019Q2

REPORT INFORMATION
  Report Type: Spontaneous
  Country: US (occurrence: US)
  Receive Date: 20190417
  Receipt Date: 20190501
  Transmission Date: 20190711
  Serious: No
  Sender: FDA-Public Use
  Company Number: US-ELI_LILLY_AND_COMPANY-US201904008509

PATIENT
  Sex: Female

DRUGS (13)
  1. HUMULIN R [Suspect]
     Active Substance: INSULIN HUMAN
     Indication: TYPE 2 DIABETES MELLITUS
     Dosage: 30 INTERNATIONAL UNIT, EACH MORNING
     Route: 065
     Dates: start: 2009
  2. HUMULIN R U-500 [Suspect]
     Active Substance: INSULIN HUMAN
     Indication: TYPE 2 DIABETES MELLITUS
     Dosage: 45 INTERNATIONAL UNIT, EACH MORNING
     Route: 065
     Dates: start: 2017, end: 20190421
  3. HUMULIN R [Suspect]
     Active Substance: INSULIN HUMAN
     Dosage: 30 INTERNATIONAL UNIT, EACH EVENING
     Route: 065
     Dates: start: 20190421
  4. HUMULIN R [Suspect]
     Active Substance: INSULIN HUMAN
     Dosage: 17 INTERNATIONAL UNIT, NOON
     Route: 065
     Dates: start: 20190421
  5. HUMULIN R U-500 [Suspect]
     Active Substance: INSULIN HUMAN
     Dosage: 45 INTERNATIONAL UNIT, EACH MORNING
     Route: 065
     Dates: start: 2017, end: 20190421
  6. HUMULIN R U-500 [Suspect]
     Active Substance: INSULIN HUMAN
     Dosage: 35 INTERNATIONAL UNIT, AFTERNOON
     Route: 065
     Dates: start: 2017, end: 20190421
  7. HUMULIN R [Suspect]
     Active Substance: INSULIN HUMAN
     Dosage: 30 INTERNATIONAL UNIT, EACH MORNING
     Route: 065
     Dates: start: 20190421
  8. HUMULIN R U-500 [Suspect]
     Active Substance: INSULIN HUMAN
     Dosage: 30 INTERNATIONAL UNIT, EACH EVENING
     Route: 065
     Dates: start: 2017, end: 20190421
  9. HUMULIN R U-500 [Suspect]
     Active Substance: INSULIN HUMAN
     Dosage: 35 INTERNATIONAL UNIT, AFTERNOON
     Route: 065
     Dates: start: 2017, end: 20190421
  10. HUMULIN R [Suspect]
     Active Substance: INSULIN HUMAN
     Dosage: 17 INTERNATIONAL UNIT, NOON
     Route: 065
     Dates: start: 2009
  11. HUMULIN R [Suspect]
     Active Substance: INSULIN HUMAN
     Dosage: 12 INTERNATIONAL UNIT, EACH EVENING
     Route: 065
     Dates: start: 2009
  12. HUMULIN R [Suspect]
     Active Substance: INSULIN HUMAN
     Dosage: 12 INTERNATIONAL UNIT, EACH EVENING
     Route: 065
     Dates: start: 20190421
  13. HUMULIN R U-500 [Suspect]
     Active Substance: INSULIN HUMAN
     Dosage: 30 INTERNATIONAL UNIT, EACH EVENING
     Route: 065
     Dates: start: 2017, end: 20190421

REACTIONS (8)
  - Asthenia [Unknown]
  - Hypokinesia [Not Recovered/Not Resolved]
  - Pyrexia [Unknown]
  - Wrong technique in product usage process [Unknown]
  - Somnolence [Unknown]
  - Fatigue [Unknown]
  - Blood glucose decreased [Unknown]
  - Blood glucose increased [Unknown]

NARRATIVE: CASE EVENT DATE: 20190421
